FAERS Safety Report 11351773 (Version 1)
Quarter: 2015Q3

REPORT INFORMATION
  Report Type: Spontaneous
  Country: US (occurrence: US)
  Receive Date: 20150807
  Receipt Date: 20150807
  Transmission Date: 20151125
  Serious: No
  Sender: FDA-Public Use
  Company Number: US-JNJFOC-20141008691

PATIENT
  Age: 24 Year
  Sex: Male
  Weight: 72.58 kg

DRUGS (3)
  1. ROGAINE EXTRA STRENGTH FOAM [Suspect]
     Active Substance: MINOXIDIL
     Indication: ALOPECIA
     Dosage: ROUGHLY HALF OF THE CAP PORTION
     Route: 061
     Dates: start: 20140305
  2. ROGAINE EXTRA STRENGTH FOAM [Suspect]
     Active Substance: MINOXIDIL
     Route: 061
  3. FISH OIL [Concomitant]
     Active Substance: FISH OIL
     Indication: ANTIOXIDANT THERAPY
     Dosage: 2 TABLESPOONS
     Route: 065

REACTIONS (3)
  - Drug ineffective [Unknown]
  - Wrong technique in product usage process [Unknown]
  - Alopecia [Not Recovered/Not Resolved]
